FAERS Safety Report 16770078 (Version 1)
Quarter: 2019Q3

REPORT INFORMATION
  Report Type: Spontaneous
  Country: HK (occurrence: HK)
  Receive Date: 20190904
  Receipt Date: 20190904
  Transmission Date: 20191005
  Serious: Yes (Hospitalization, Other)
  Sender: FDA-Public Use
  Company Number: HK-TEVA-2019-HK-1102212

PATIENT
  Sex: Female

DRUGS (5)
  1. CICLOSPORIN [Suspect]
     Active Substance: CYCLOSPORINE
     Indication: IMMUNOSUPPRESSANT DRUG THERAPY
     Route: 065
     Dates: start: 2011
  2. MYCOPHENOLATE MOFETIL. [Suspect]
     Active Substance: MYCOPHENOLATE MOFETIL
     Indication: IMMUNOSUPPRESSANT DRUG THERAPY
     Route: 065
     Dates: start: 2009
  3. METHOTREXATE. [Suspect]
     Active Substance: METHOTREXATE
     Indication: IMMUNOSUPPRESSANT DRUG THERAPY
     Route: 065
  4. PREDNISOLONE. [Suspect]
     Active Substance: PREDNISOLONE
     Indication: IMMUNOSUPPRESSANT DRUG THERAPY
     Dosage: SYSTEMIC STEROIDS
     Route: 065
  5. AZATHIOPRINE. [Suspect]
     Active Substance: AZATHIOPRINE
     Indication: IMMUNOSUPPRESSANT DRUG THERAPY
     Route: 065
     Dates: end: 2009

REACTIONS (15)
  - Pneumonia bacterial [Unknown]
  - Status epilepticus [Unknown]
  - Arthritis [Unknown]
  - Herpes zoster [Unknown]
  - Oral candidiasis [Unknown]
  - Arthritis [Unknown]
  - Drug ineffective [Unknown]
  - Epstein-Barr virus associated lymphoma [Unknown]
  - Epstein-Barr virus infection [Unknown]
  - Diffuse large B-cell lymphoma [Unknown]
  - Muscular weakness [Unknown]
  - Atrioventricular block complete [Unknown]
  - Relapsing fever [Unknown]
  - Smooth muscle cell neoplasm [Unknown]
  - Pulmonary fibrosis [Unknown]

NARRATIVE: CASE EVENT DATE: 200703
